FAERS Safety Report 5040624-4 (Version None)
Quarter: 2006Q2

REPORT INFORMATION
  Report Type: 
  Country: None (occurrence: None)
  Receive Date: 20060628
  Receipt Date: 20060614
  Transmission Date: 20061013
  Serious: Yes (Death)
  Sender: FDA-Public Use
  Company Number: S06-DEN-02592-01

PATIENT
  Weight: 80 kg

DRUGS (6)
  1. AKARIN (CITALOPRAM) [Suspect]
  2. AKARIN (CITALOPRAM) [Suspect]
  3. ESCITALOPRAM OXALATE [Suspect]
  4. ESCITALOPRAM OXALATE [Suspect]
  5. TRUXAL (CHLORPROTHIXENE HYDROCHLORIDE) [Suspect]
  6. TRUXAL (CHLORPROTHIXENE HYDROCHLORIDE) [Suspect]

REACTIONS (1)
  - OVERDOSE [None]
